FAERS Safety Report 9727990 (Version 2)
Quarter: 2013Q4

REPORT INFORMATION
  Report Type: Spontaneous
  Country: JP (occurrence: JP)
  Receive Date: 20131204
  Receipt Date: 20131204
  Transmission Date: 20140711
  Serious: Yes (Other)
  Sender: FDA-Public Use
  Company Number: JP-009507513-1309JPN010020

PATIENT
  Sex: Female

DRUGS (1)
  1. FOSAMAC TABLETS-5 [Suspect]
     Route: 048

REACTIONS (2)
  - Atypical femur fracture [Unknown]
  - Intramedullary rod insertion [Unknown]
